FAERS Safety Report 7919451-3 (Version None)
Quarter: 2011Q4

REPORT INFORMATION
  Report Type: 
  Country: None (occurrence: None)
  Receive Date: 20111115
  Receipt Date: 20111107
  Transmission Date: 20120403
  Serious: Yes (Disabling, Other)
  Sender: FDA-Public Use
  Company Number: ACO_26510_2011

PATIENT
  Age: 39 Year
  Sex: Male
  Weight: 108.8633 kg

DRUGS (3)
  1. FLOMAX /00889901/ (MORNIFLUMATE) [Concomitant]
  2. AMPYRA [Suspect]
     Indication: GAIT DISTURBANCE
     Dosage: 10 MG, BID, ORAL
     Route: 048
     Dates: start: 20110201, end: 20110401
  3. BACLOFEN [Concomitant]

REACTIONS (9)
  - DRUG INEFFECTIVE [None]
  - MUSCULAR WEAKNESS [None]
  - HEADACHE [None]
  - MULTIPLE SCLEROSIS RELAPSE [None]
  - ACTIVITIES OF DAILY LIVING IMPAIRED [None]
  - DYSSTASIA [None]
  - GAIT DISTURBANCE [None]
  - ARTHRALGIA [None]
  - INFLUENZA [None]
